FAERS Safety Report 19057344 (Version 1)
Quarter: 2021Q1

REPORT INFORMATION
  Report Type: Spontaneous
  Country: NL (occurrence: FR)
  Receive Date: 20210325
  Receipt Date: 20210325
  Transmission Date: 20210420
  Serious: Yes (Hospitalization)
  Sender: FDA-Public Use
  Company Number: FR-FRESENIUS KABI-FK202102883

PATIENT
  Age: 19 Year
  Sex: Female
  Weight: 47 kg

DRUGS (8)
  1. CHLOROBUTANOL/CHLOROFORM/DOCUSATE SODIUM/CHLORHEXIDINE GLUCONATE [Concomitant]
     Indication: PRODUCT USED FOR UNKNOWN INDICATION
     Dosage: ELUDRIL SOLUTION FOR MOUTH WASH
     Route: 065
  2. URSODEOXYCHOLIC ACID [Concomitant]
     Active Substance: URSODIOL
     Indication: PRODUCT USED FOR UNKNOWN INDICATION
     Route: 065
  3. VALACICLOVIR [Concomitant]
     Active Substance: VALACYCLOVIR HYDROCHLORIDE
     Indication: PRODUCT USED FOR UNKNOWN INDICATION
     Route: 065
  4. NOMEGESTROL [Concomitant]
     Active Substance: NOMEGESTROL
     Indication: PRODUCT USED FOR UNKNOWN INDICATION
     Route: 065
  5. PANTOPRAZOLE [Concomitant]
     Active Substance: PANTOPRAZOLE
     Indication: PRODUCT USED FOR UNKNOWN INDICATION
     Route: 065
  6. FILGRASTIM [Concomitant]
     Active Substance: FILGRASTIM
     Indication: PRODUCT USED FOR UNKNOWN INDICATION
     Route: 065
  7. PARACETAMOL [Concomitant]
     Active Substance: ACETAMINOPHEN
     Indication: PRODUCT USED FOR UNKNOWN INDICATION
     Route: 065
  8. CYTARABINE (MANUFACTURER UNKNOWN) [Suspect]
     Active Substance: CYTARABINE
     Indication: ACUTE MYELOID LEUKAEMIA
     Route: 041
     Dates: start: 20201109, end: 20201208

REACTIONS (1)
  - Hepatocellular injury [Recovered/Resolved]

NARRATIVE: CASE EVENT DATE: 202012
